FAERS Safety Report 21525884 (Version 2)
Quarter: 2022Q4

REPORT INFORMATION
  Report Type: Report from Study
  Country: US (occurrence: US)
  Receive Date: 20221031
  Receipt Date: 20221128
  Transmission Date: 20230113
  Serious: Yes (Hospitalization)
  Sender: FDA-Public Use
  Company Number: US-BEH-2022148712

PATIENT
  Age: 48 Year
  Sex: Male
  Weight: 104.76 kg

DRUGS (8)
  1. HIZENTRA [Suspect]
     Active Substance: HUMAN IMMUNOGLOBULIN G
     Indication: Chronic inflammatory demyelinating polyradiculoneuropathy
     Dosage: 80 GRAM, QW
     Route: 058
     Dates: start: 20220811, end: 2022
  2. HIZENTRA [Suspect]
     Active Substance: HUMAN IMMUNOGLOBULIN G
     Indication: Pain
     Dosage: 20 GRAM, QD (ON DAY 1 AND DAY 2)
     Route: 042
     Dates: start: 202208
  3. HIZENTRA [Suspect]
     Active Substance: HUMAN IMMUNOGLOBULIN G
     Dosage: 40 GRAM, QW
     Route: 042
     Dates: start: 20220817
  4. HIZENTRA [Suspect]
     Active Substance: HUMAN IMMUNOGLOBULIN G
     Dosage: 40 GRAM, QW
     Route: 058
  5. HIZENTRA [Suspect]
     Active Substance: HUMAN IMMUNOGLOBULIN G
     Dosage: UNK
     Route: 065
     Dates: end: 202208
  6. HIZENTRA [Suspect]
     Active Substance: HUMAN IMMUNOGLOBULIN G
     Dosage: 0.4 GRAM, BIW
     Route: 065
  7. HIZENTRA [Suspect]
     Active Substance: HUMAN IMMUNOGLOBULIN G
     Dosage: 0.4 UNK
     Route: 065
     Dates: end: 20220831
  8. HUMAN IMMUNOGLOBULIN G [Suspect]
     Active Substance: HUMAN IMMUNOGLOBULIN G
     Route: 042

REACTIONS (14)
  - Infusion site mass [Not Recovered/Not Resolved]
  - Pruritus [Not Recovered/Not Resolved]
  - No adverse event [Not Recovered/Not Resolved]
  - Off label use [Not Recovered/Not Resolved]
  - Pruritus [Not Recovered/Not Resolved]
  - No adverse event [Unknown]
  - Off label use [Unknown]
  - No adverse event [Not Recovered/Not Resolved]
  - Product supply issue [Not Recovered/Not Resolved]
  - Pruritus [Recovering/Resolving]
  - Swelling [Unknown]
  - Urticaria [Unknown]
  - No adverse event [Unknown]
  - Therapy change [Unknown]

NARRATIVE: CASE EVENT DATE: 20220101
